FAERS Safety Report 5542026-0 (Version None)
Quarter: 2007Q4

REPORT INFORMATION
  Report Type: 
  Country: None (occurrence: None)
  Receive Date: 20071210
  Receipt Date: 20070510
  Transmission Date: 20080405
  Serious: Yes (Hospitalization, Other)
  Sender: FDA-Public Use
  Company Number: US-ASTRAZENECA-2006UW07025

PATIENT
  Sex: Female

DRUGS (3)
  1. SEROQUEL [Suspect]
     Route: 048
  2. RISPERDAL [Concomitant]
     Dates: start: 20000101, end: 20000101
  3. ZYPREXA [Concomitant]
     Dates: start: 20000101, end: 20010101

REACTIONS (4)
  - BREAST LUMP REMOVAL [None]
  - DIABETES MELLITUS [None]
  - HYSTERECTOMY [None]
  - SUICIDE ATTEMPT [None]
